FAERS Safety Report 9839842 (Version 1)
Quarter: 2014Q1

REPORT INFORMATION
  Report Type: Spontaneous
  Country: US (occurrence: US)
  Receive Date: 20140124
  Receipt Date: 20140124
  Transmission Date: 20141002
  Serious: Yes (Other)
  Sender: FDA-Public Use
  Company Number: US-009507513-1401USA008747

PATIENT
  Sex: Male

DRUGS (7)
  1. JANUMET [Suspect]
     Indication: DIABETES MELLITUS
     Dosage: 50/500
     Route: 048
     Dates: start: 2004
  2. JANUMET [Suspect]
     Dosage: 1.5 50/ 500, QD
     Route: 048
  3. JANUMET [Suspect]
     Dosage: 50/1000 QD
     Route: 048
  4. JANUMET [Suspect]
     Dosage: 50/500 BID
     Route: 048
  5. VICTOZA [Suspect]
  6. GLIPIZIDE [Concomitant]
  7. ATENOLOL [Concomitant]

REACTIONS (5)
  - Blood glucose increased [Recovered/Resolved]
  - Abdominal pain upper [Unknown]
  - Blood glucose abnormal [Unknown]
  - Injection site discolouration [Unknown]
  - Hypersensitivity [Unknown]
